FAERS Safety Report 14174596 (Version 1)
Quarter: 2017Q4

REPORT INFORMATION
  Report Type: Spontaneous
  Country: US (occurrence: US)
  Receive Date: 20171109
  Receipt Date: 20171109
  Transmission Date: 20180321
  Serious: Yes (Hospitalization)
  Sender: FDA-Public Use
  Company Number: PHHY2017US160279

PATIENT
  Age: 69 Year
  Sex: Male

DRUGS (8)
  1. METHADONE [Interacting]
     Active Substance: METHADONE HYDROCHLORIDE
     Indication: SUBSTANCE USE DISORDER
     Dosage: 150 MG, QD
     Route: 048
  2. GABAPENTIN. [Concomitant]
     Active Substance: GABAPENTIN
     Indication: PRODUCT USED FOR UNKNOWN INDICATION
     Dosage: 600 MG, TID
     Route: 048
  3. FUROSEMIDE. [Concomitant]
     Active Substance: FUROSEMIDE
     Indication: PRODUCT USED FOR UNKNOWN INDICATION
     Dosage: 10 MG, QD
     Route: 048
  4. ROBITUSSIN DM [Interacting]
     Active Substance: DEXTROMETHORPHAN HYDROBROMIDE\GUAIFENESIN
     Indication: PRODUCT USED FOR UNKNOWN INDICATION
     Route: 065
  5. LOSARTAN. [Concomitant]
     Active Substance: LOSARTAN
     Indication: PRODUCT USED FOR UNKNOWN INDICATION
     Dosage: 25 MG, QD
     Route: 048
  6. METHADONE [Suspect]
     Active Substance: METHADONE HYDROCHLORIDE
     Indication: DRUG USE DISORDER
     Dosage: 150 MG, QD
     Route: 048
  7. DICLOFENAC [Concomitant]
     Active Substance: DICLOFENAC
     Indication: PRODUCT USED FOR UNKNOWN INDICATION
     Dosage: 75 MG, BID
     Route: 048
  8. OMEPRAZOLE. [Concomitant]
     Active Substance: OMEPRAZOLE
     Indication: PRODUCT USED FOR UNKNOWN INDICATION
     Dosage: 40 MG, QD
     Route: 048

REACTIONS (26)
  - Lethargy [Unknown]
  - Toxicity to various agents [Unknown]
  - Abnormal behaviour [Unknown]
  - Delusion [Unknown]
  - Tachyphrenia [Unknown]
  - Aggression [Unknown]
  - Confusional state [Unknown]
  - Memory impairment [Unknown]
  - Cyclothymic disorder [Unknown]
  - Disturbance in attention [Unknown]
  - Gait disturbance [Unknown]
  - Drug interaction [Unknown]
  - Anxiety [Unknown]
  - Product use in unapproved indication [Unknown]
  - Irritability [Unknown]
  - Psychomotor hyperactivity [Unknown]
  - Bipolar disorder [Unknown]
  - Delirium [Unknown]
  - Emotional distress [Unknown]
  - Thinking abnormal [Unknown]
  - Mania [Unknown]
  - Paranoia [Unknown]
  - Insomnia [Unknown]
  - Sedation [Unknown]
  - Affect lability [Unknown]
  - Consciousness fluctuating [Unknown]
